FAERS Safety Report 5314473-3 (Version None)
Quarter: 2007Q2

REPORT INFORMATION
  Report Type: 
  Country: None (occurrence: None)
  Receive Date: 20070502
  Receipt Date: 20070116
  Transmission Date: 20071010
  Serious: No
  Sender: FDA-Public Use
  Company Number: S2007US00368

PATIENT
  Sex: Male

DRUGS (2)
  1. AMOXICILLIN [Suspect]
     Indication: PSEUDOMONAS INFECTION
  2. LEVAQUIN [Suspect]
     Indication: PSEUDOMONAS INFECTION

REACTIONS (1)
  - DRUG INEFFECTIVE [None]
